FAERS Safety Report 9215470 (Version 1)
Quarter: 2013Q2

REPORT INFORMATION
  Report Type: Spontaneous
  Country: BY (occurrence: BY)
  Receive Date: 20130406
  Receipt Date: 20130406
  Transmission Date: 20140414
  Serious: Yes (Hospitalization)
  Sender: FDA-Public Use
  Company Number: BY-GE HEALTHCARE MEDICAL DIAGNOSTICS-VISP-NO-1304S-0522

PATIENT
  Age: 68 Year
  Sex: Male

DRUGS (2)
  1. VISIPAQUE [Suspect]
     Indication: CORONARY ARTERY DISEASE
     Route: 013
     Dates: start: 20130402, end: 20130402
  2. VISIPAQUE [Suspect]
     Indication: DIAGNOSTIC PROCEDURE

REACTIONS (4)
  - Cold sweat [Recovered/Resolved]
  - Asthenia [Recovered/Resolved]
  - Dizziness [Recovered/Resolved]
  - Nausea [Recovered/Resolved]
